FAERS Safety Report 5551430-6 (Version None)
Quarter: 2007Q4

REPORT INFORMATION
  Report Type: 
  Country: None (occurrence: None)
  Receive Date: 20071128
  Receipt Date: 20070414
  Transmission Date: 20080405
  Serious: Yes (Other)
  Sender: FDA-Public Use
  Company Number: 2007030533

PATIENT
  Age: 75 Year
  Sex: Female
  Weight: 68.0396 kg

DRUGS (8)
  1. LIPITOR [Suspect]
     Indication: BLOOD CHOLESTEROL INCREASED
     Dosage: 40 MG (40 MG, 1 IN 1 D) 10-12 YEARS AGO
  2. SUDAFED S.A. [Suspect]
  3. CALCIUM (CALCIUM) [Concomitant]
  4. ACETYLSALICYLIC ACID SRT [Concomitant]
  5. MULTIVITAMIN [Concomitant]
  6. FISH OIL (FISH OIL) [Concomitant]
  7. LINSEED OIL (LINSEED OIL) [Concomitant]
  8. CHARCOAL ACTIVATED (CHARCOAL ACTIVATED) [Concomitant]

REACTIONS (4)
  - BLOOD PRESSURE INCREASED [None]
  - BONE PAIN [None]
  - CONSTIPATION [None]
  - UBIQUINONE DECREASED [None]
